FAERS Safety Report 15837870 (Version 1)
Quarter: 2019Q1

REPORT INFORMATION
  Report Type: Spontaneous
  Country: NL (occurrence: NL)
  Receive Date: 20190117
  Receipt Date: 20190117
  Transmission Date: 20190417
  Serious: Yes (Hospitalization, Other)
  Sender: FDA-Public Use
  Company Number: NL-SAKK-2019SA009435AA

PATIENT
  Sex: Female

DRUGS (3)
  1. LEFLUNOMIDE. [Suspect]
     Active Substance: LEFLUNOMIDE
     Dosage: 1X PER DAY 1 UNIT
     Route: 064
  2. PREDNISOLON [PREDNISOLONE ACETATE] [Concomitant]
     Dosage: 5 MG QD
  3. SALBUTAMOL [Concomitant]
     Active Substance: ALBUTEROL

REACTIONS (4)
  - Foetal growth restriction [Unknown]
  - Maternal exposure during pregnancy [Unknown]
  - Ultrasound scan abnormal [Unknown]
  - Single umbilical artery [Unknown]
